FAERS Safety Report 11339417 (Version 2)
Quarter: 2015Q3

REPORT INFORMATION
  Report Type: Spontaneous
  Country: US (occurrence: US)
  Receive Date: 20150805
  Receipt Date: 20150826
  Transmission Date: 20151125
  Serious: Yes (Other)
  Sender: FDA-Public Use
  Company Number: US-ROCHE-ITM201506IM018378

PATIENT
  Sex: Female
  Weight: 67.19 kg

DRUGS (1)
  1. ESBRIET [Suspect]
     Active Substance: PIRFENIDONE
     Indication: IDIOPATHIC PULMONARY FIBROSIS
     Route: 048
     Dates: start: 20150327

REACTIONS (4)
  - Diarrhoea [Unknown]
  - Hepatic enzyme increased [Recovered/Resolved]
  - Nausea [Unknown]
  - Headache [Unknown]
